FAERS Safety Report 10982341 (Version 2)
Quarter: 2016Q3

REPORT INFORMATION
  Report Type: Spontaneous
  Country: US (occurrence: US)
  Receive Date: 20150403
  Receipt Date: 20160816
  Transmission Date: 20161109
  Serious: Yes (Hospitalization)
  Sender: FDA-Public Use
  Company Number: US-PFIZER INC-2015109495

PATIENT
  Age: 52 Year
  Sex: Female
  Weight: 71 kg

DRUGS (23)
  1. ASPIRIN. [Concomitant]
     Active Substance: ASPIRIN
     Dosage: 81 MG, UNK
     Route: 048
     Dates: start: 20130502
  2. OSCAL-500 [Concomitant]
     Dosage: 2 DF, DAILY
     Route: 048
     Dates: start: 20140213
  3. KEFLEX [Concomitant]
     Active Substance: CEPHALEXIN
     Dosage: 250 MG, 3X/DAY
     Route: 048
     Dates: start: 20150228
  4. LYRICA [Suspect]
     Active Substance: PREGABALIN
     Indication: INTERVERTEBRAL DISC DISORDER
  5. PRINIVIL [Concomitant]
     Active Substance: LISINOPRIL
     Dosage: 20 MG, 2X/DAY
     Route: 048
     Dates: start: 20141126
  6. LASIX [Concomitant]
     Active Substance: FUROSEMIDE
     Indication: OEDEMA
     Dosage: 20 MG, DAILY
     Route: 048
     Dates: start: 20141126, end: 20141126
  7. NORCO [Concomitant]
     Active Substance: ACETAMINOPHEN\HYDROCODONE BITARTRATE
     Indication: PAIN
     Dosage: 1 DF, AS NEEDED (TAKE 1 TABLET BY MOUTH EVERY 4 HOURS AS NEEDED))
     Route: 048
     Dates: start: 20150225
  8. KCL [Concomitant]
     Active Substance: POTASSIUM CHLORIDE
     Dosage: UNK
  9. DESYREL [Concomitant]
     Active Substance: TRAZODONE HYDROCHLORIDE
     Indication: MAJOR DEPRESSION
     Dosage: 1 DF, 1X/DAY (AT BEDTIME)
     Route: 048
     Dates: start: 20141126
  10. LYRICA [Suspect]
     Active Substance: PREGABALIN
     Indication: PAIN
     Dosage: 75 MG, 3X/DAY
     Route: 048
     Dates: start: 20150205, end: 20150309
  11. LYRICA [Suspect]
     Active Substance: PREGABALIN
     Indication: RADICULOPATHY
  12. CELEXA [Concomitant]
     Active Substance: CITALOPRAM HYDROBROMIDE
     Indication: DEPRESSION
     Dosage: 40 MG, DAILY
     Route: 048
     Dates: start: 20141126
  13. LYRICA [Suspect]
     Active Substance: PREGABALIN
     Indication: PAIN IN EXTREMITY
  14. VITAMIN D3 [Concomitant]
     Active Substance: CHOLECALCIFEROL
     Dosage: 1000 IU, DAILY
     Route: 048
     Dates: start: 20150213
  15. FLEXERIL [Concomitant]
     Active Substance: CYCLOBENZAPRINE HYDROCHLORIDE
     Dosage: 10 MG, AS NEEDED (TAKE 1 TABLET BY MOUTH 3 TIMES DAILY AS NEEDED)
     Route: 048
     Dates: start: 20141126
  16. ATIVAN [Concomitant]
     Active Substance: LORAZEPAM
     Dosage: 1 MG, 3X/DAY
     Route: 048
     Dates: start: 20141201
  17. LISINOPRIL. [Concomitant]
     Active Substance: LISINOPRIL
     Dosage: UNK
  18. TRAZODONE [Concomitant]
     Active Substance: TRAZODONE HYDROCHLORIDE
     Dosage: UNK
  19. K-DUR [Concomitant]
     Active Substance: POTASSIUM CHLORIDE
     Indication: HYPERTENSION
     Dosage: 10 MEQ, 2X/DAY
     Route: 048
     Dates: start: 20141126
  20. KLOR-CON [Concomitant]
     Active Substance: POTASSIUM CHLORIDE
     Indication: HYPERTENSION
     Dosage: 10 MEQ, 2X/DAY
     Dates: start: 20141126
  21. CALCIUM CARBONATE/COLECALCIFEROL [Concomitant]
     Dosage: UNK
  22. LYRICA [Suspect]
     Active Substance: PREGABALIN
     Indication: BACK PAIN
  23. ZESTRIL [Concomitant]
     Active Substance: LISINOPRIL
     Dosage: 20 MG, 2X/DAY
     Route: 048
     Dates: start: 20141126

REACTIONS (9)
  - Loss of consciousness [Unknown]
  - Anxiety [Unknown]
  - Dysphoria [Unknown]
  - Musculoskeletal discomfort [Unknown]
  - Nervousness [Unknown]
  - Psychomotor hyperactivity [Unknown]
  - Walking aid user [Unknown]
  - Drug dispensing error [Unknown]
  - Syncope [Unknown]
